FAERS Safety Report 8167028-X (Version None)
Quarter: 2012Q1

REPORT INFORMATION
  Report Type: 
  Country: None (occurrence: None)
  Receive Date: 20120227
  Receipt Date: 20120224
  Transmission Date: 20120608
  Serious: Yes (Other)
  Sender: FDA-Public Use
  Company Number: US-PFIZER INC-K201100739

PATIENT
  Sex: Female

DRUGS (1)
  1. SEPTRA [Suspect]
     Indication: FURUNCLE
     Dosage: UNK
     Route: 048

REACTIONS (9)
  - BEDRIDDEN [None]
  - OEDEMA PERIPHERAL [None]
  - DIARRHOEA [None]
  - NAUSEA [None]
  - DIZZINESS [None]
  - FEELING ABNORMAL [None]
  - AORTIC STENOSIS [None]
  - FATIGUE [None]
  - DYSPNOEA [None]
